FAERS Safety Report 5007341-8 (Version None)
Quarter: 2006Q2

REPORT INFORMATION
  Report Type: 
  Country: None (occurrence: None)
  Receive Date: 20060517
  Receipt Date: 20060503
  Transmission Date: 20061013
  Serious: Yes (Other)
  Sender: FDA-Public Use
  Company Number: 2006RR-02190

PATIENT
  Age: 54 Year
  Sex: Male

DRUGS (4)
  1. FLUOXETINE [Suspect]
     Dosage: 60 MG
  2. ZOLPIDEM TARTRATE [Suspect]
  3. SILDENAFIL CITRATE [Concomitant]
  4. VICODIN [Concomitant]

REACTIONS (11)
  - BALANCE DISORDER [None]
  - BINOCULAR EYE MOVEMENT DISORDER [None]
  - DRUG INTERACTION [None]
  - DYSARTHRIA [None]
  - HALLUCINATION [None]
  - HYPOVENTILATION [None]
  - MEDICATION ERROR [None]
  - NYSTAGMUS [None]
  - PSYCHOMOTOR SKILLS IMPAIRED [None]
  - PUPILLARY LIGHT REFLEX TESTS ABNORMAL [None]
  - RESPIRATORY RATE DECREASED [None]
